FAERS Safety Report 18342625 (Version 1)
Quarter: 2020Q4

REPORT INFORMATION
  Report Type: Report from Study
  Country: DE (occurrence: DE)
  Receive Date: 20201005
  Receipt Date: 20201005
  Transmission Date: 20210113
  Serious: Yes (Hospitalization)
  Sender: FDA-Public Use
  Company Number: NVSC2020DE191158

PATIENT
  Age: 78 Year
  Sex: Female
  Weight: 54 kg

DRUGS (1)
  1. BYL719 [Suspect]
     Active Substance: ALPELISIB
     Indication: BREAST CANCER
     Dosage: 300 MG
     Route: 048
     Dates: start: 20200619, end: 20200628

REACTIONS (3)
  - Haematuria [Not Recovered/Not Resolved]
  - Anaemia [Not Recovered/Not Resolved]
  - Stomatitis [Not Recovered/Not Resolved]

NARRATIVE: CASE EVENT DATE: 20200628
